FAERS Safety Report 5152603-7 (Version None)
Quarter: 2006Q4

REPORT INFORMATION
  Report Type: 
  Country: None (occurrence: None)
  Receive Date: 20061109
  Receipt Date: 20061024
  Transmission Date: 20070319
  Serious: Yes (Death, Hospitalization, Other)
  Sender: FDA-Public Use
  Company Number: US-2006-029797

PATIENT
  Age: 53 Year
  Sex: Female

DRUGS (3)
  1. BETASERON [Suspect]
     Indication: MULTIPLE SCLEROSIS
     Dosage: SUBCUTANEOUS
     Route: 058
     Dates: start: 19950814, end: 20030101
  2. MORPHINE [Concomitant]
  3. VALIUM [Concomitant]

REACTIONS (3)
  - GASTROINTESTINAL NEOPLASM [None]
  - OPERATIVE HAEMORRHAGE [None]
  - SALPINGECTOMY [None]
